FAERS Safety Report 16695703 (Version 1)
Quarter: 2019Q3

REPORT INFORMATION
  Report Type: Spontaneous
  Country: NL (occurrence: NL)
  Receive Date: 20190813
  Receipt Date: 20190813
  Transmission Date: 20191004
  Serious: Yes (Life-Threatening, Other)
  Sender: FDA-Public Use
  Company Number: NL-ROCHE-2373943

PATIENT
  Age: 39 Year
  Sex: Female

DRUGS (14)
  1. METHYLPREDNISOLONE. [Suspect]
     Active Substance: METHYLPREDNISOLONE
     Indication: PROPHYLAXIS AGAINST TRANSPLANT REJECTION
  2. TACROLIMUS. [Suspect]
     Active Substance: TACROLIMUS
     Indication: PROPHYLAXIS AGAINST TRANSPLANT REJECTION
  3. VANCOMYCIN [Concomitant]
     Active Substance: VANCOMYCIN
     Route: 042
  4. METHYLPREDNISOLONE. [Suspect]
     Active Substance: METHYLPREDNISOLONE
     Indication: PROPHYLAXIS AGAINST TRANSPLANT REJECTION
     Route: 042
  5. HEPARIN [Concomitant]
     Active Substance: HEPARIN SODIUM
     Route: 065
  6. ALEMTUZUMAB [Suspect]
     Active Substance: ALEMTUZUMAB
     Indication: PROPHYLAXIS AGAINST TRANSPLANT REJECTION
     Route: 058
  7. ALEMTUZUMAB [Suspect]
     Active Substance: ALEMTUZUMAB
     Indication: PROPHYLAXIS AGAINST TRANSPLANT REJECTION
  8. PREDNISOLONE. [Concomitant]
     Active Substance: PREDNISOLONE
     Route: 042
  9. INSULIN ASPART [Concomitant]
     Active Substance: INSULIN ASPART
     Route: 058
  10. MYCOPHENOLATE MOFETIL. [Suspect]
     Active Substance: MYCOPHENOLATE MOFETIL
     Indication: PROPHYLAXIS AGAINST TRANSPLANT REJECTION
  11. TACROLIMUS. [Suspect]
     Active Substance: TACROLIMUS
     Indication: PROPHYLAXIS AGAINST TRANSPLANT REJECTION
     Route: 065
  12. INSULIN GLARGINE [Concomitant]
     Active Substance: INSULIN GLARGINE
     Route: 058
  13. MYCOPHENOLATE MOFETIL. [Suspect]
     Active Substance: MYCOPHENOLATE MOFETIL
     Indication: PROPHYLAXIS AGAINST TRANSPLANT REJECTION
     Route: 065
  14. CIPROFLOXACIN. [Concomitant]
     Active Substance: CIPROFLOXACIN
     Route: 065

REACTIONS (6)
  - Haemorrhage [Unknown]
  - Enterococcal infection [Unknown]
  - Hypovolaemic shock [Unknown]
  - Infective aneurysm [Unknown]
  - Pseudomonas infection [Unknown]
  - Anastomotic infection [Unknown]
